FAERS Safety Report 13784008 (Version 1)
Quarter: 2017Q3

REPORT INFORMATION
  Report Type: Spontaneous
  Country: US (occurrence: US)
  Receive Date: 20170724
  Receipt Date: 20170724
  Transmission Date: 20171127
  Serious: Yes (Other)
  Sender: FDA-Public Use
  Company Number: US-SA-2017SA125205

PATIENT
  Sex: Female

DRUGS (1)
  1. BUSCO RANITIDINE [Suspect]
     Active Substance: RANITIDINE HYDROCHLORIDE
     Indication: GASTROOESOPHAGEAL REFLUX DISEASE
     Route: 065

REACTIONS (5)
  - Ovarian cancer [Unknown]
  - Memory impairment [Unknown]
  - Feeling abnormal [Unknown]
  - Sinus disorder [Unknown]
  - Diaphragmalgia [Unknown]
